FAERS Safety Report 5729309-6 (Version None)
Quarter: 2008Q2

REPORT INFORMATION
  Report Type: 
  Country: None (occurrence: None)
  Receive Date: 20080506
  Receipt Date: 20080424
  Transmission Date: 20081010
  Serious: Yes (Death, Hospitalization)
  Sender: FDA-Public Use
  Company Number: FR-PFIZER INC-2008035041

PATIENT
  Sex: Female
  Weight: 61 kg

DRUGS (6)
  1. SU-011,248 [Suspect]
     Indication: THYROID CANCER
     Dates: start: 20080313, end: 20080407
  2. OMEPRAZOLE [Concomitant]
  3. HYPERIUM [Concomitant]
     Dates: start: 20080320
  4. MIANSERIN [Concomitant]
  5. LEVOTHYROXINE SODIUM [Concomitant]
     Dates: start: 19990101
  6. OTHER HYPNOTICS AND SEDATIVES [Concomitant]

REACTIONS (2)
  - AORTIC THROMBOSIS [None]
  - CARDIAC FAILURE CONGESTIVE [None]
